FAERS Safety Report 6936919-7 (Version None)
Quarter: 2010Q3

REPORT INFORMATION
  Report Type: 
  Country: None (occurrence: None)
  Receive Date: 20100823
  Receipt Date: 20100818
  Transmission Date: 20110219
  Serious: Yes (Hospitalization)
  Sender: FDA-Public Use
  Company Number: FR-BRISTOL-MYERS SQUIBB COMPANY-15246192

PATIENT
  Age: 49 Year
  Sex: Female

DRUGS (2)
  1. TAXOL [Suspect]
     Indication: BREAST CANCER
     Dosage: CYCLES 3 INJECTIONS ON D1, D8 AND D15
     Dates: start: 20100414
  2. AVASTIN [Suspect]
     Indication: BREAST CANCER
     Dosage: CYCLES 3 INJECTIONS ON D1, D8 AND D15Q
     Dates: start: 20100414, end: 20100624

REACTIONS (1)
  - LUNG DISORDER [None]
